FAERS Safety Report 9347263 (Version 3)
Quarter: 2013Q4

REPORT INFORMATION
  Report Type: Report from Study
  Country: US (occurrence: US)
  Receive Date: 20130613
  Receipt Date: 20131001
  Transmission Date: 20140711
  Serious: Yes (Hospitalization, Other)
  Sender: FDA-Public Use
  Company Number: US-ACTELION-A-US2013-84172

PATIENT
  Age: 68 Year
  Sex: Female

DRUGS (3)
  1. VELETRI [Suspect]
     Indication: PULMONARY ARTERIAL HYPERTENSION
     Dosage: 82 UNK, UNK
     Route: 042
  2. VELETRI [Suspect]
     Dosage: 86 NG/KG, PER MIN
     Route: 042
     Dates: start: 20101101
  3. LETAIRIS [Concomitant]

REACTIONS (6)
  - Respiratory tract infection [Recovered/Resolved]
  - Cough [Recovered/Resolved]
  - Dyspnoea [Recovered/Resolved]
  - Abnormal loss of weight [Recovering/Resolving]
  - Influenza [Unknown]
  - Diarrhoea [Unknown]
